FAERS Safety Report 9765118 (Version 1)
Quarter: 2013Q4

REPORT INFORMATION
  Report Type: Spontaneous
  Country: US (occurrence: None)
  Receive Date: 20131216
  Receipt Date: 20131216
  Transmission Date: 20140711
  Serious: Yes (Hospitalization)
  Sender: FDA-Public Use
  Company Number: None

PATIENT
  Age: 24 Year
  Sex: Female
  Weight: 58.06 kg

DRUGS (1)
  1. ROCEPHIN [Suspect]
     Dates: start: 20131209, end: 20131209

REACTIONS (4)
  - Dizziness [None]
  - Dysstasia [None]
  - Visual impairment [None]
  - Sensory loss [None]
